FAERS Safety Report 6939070-5 (Version None)
Quarter: 2010Q3

REPORT INFORMATION
  Report Type: 
  Country: None (occurrence: None)
  Receive Date: 20100824
  Receipt Date: 20100818
  Transmission Date: 20110219
  Serious: Yes (Hospitalization)
  Sender: FDA-Public Use
  Company Number: JP-B.I. PHARMACEUTICALS,INC./RIDGEFIELD-2010-BP-06000NB

PATIENT
  Sex: Male
  Weight: 42.7 kg

DRUGS (12)
  1. SPIRIVA [Suspect]
     Indication: CHRONIC OBSTRUCTIVE PULMONARY DISEASE
     Dosage: 18 MCG
     Route: 055
     Dates: start: 20100325, end: 20100418
  2. TERSIGAN [Suspect]
     Dosage: 4DF
     Route: 055
     Dates: start: 19900101, end: 20100324
  3. RABEPRAZOLE SODIUM [Concomitant]
     Indication: GASTROOESOPHAGEAL REFLUX DISEASE
     Dosage: 10 MG
     Route: 048
     Dates: start: 20080821
  4. FUROSEMIDE [Concomitant]
     Dosage: 40 MG
     Route: 048
  5. DIGOSIN [Concomitant]
     Indication: ATRIAL FIBRILLATION
     Dosage: 0.25 MG
     Route: 048
     Dates: start: 20070725
  6. PREDONINE [Concomitant]
     Indication: CHRONIC OBSTRUCTIVE PULMONARY DISEASE
     Dosage: 5 MG
     Route: 048
     Dates: start: 20080411
  7. MUCOTRON [Concomitant]
     Indication: CHRONIC OBSTRUCTIVE PULMONARY DISEASE
     Dosage: 1500 MG
     Route: 048
     Dates: start: 19900108
  8. MAGMITT [Concomitant]
     Indication: CONSTIPATION
     Dosage: 990 MG
     Route: 048
     Dates: start: 20060404
  9. SELBEX [Concomitant]
     Indication: GASTROOESOPHAGEAL REFLUX DISEASE
     Dosage: 150 MG
     Route: 048
     Dates: start: 20070821
  10. PURSENNID [Concomitant]
     Dosage: 12 MG
     Route: 048
  11. QVAR 40 [Concomitant]
     Indication: CHRONIC OBSTRUCTIVE PULMONARY DISEASE
     Dosage: 400 MCG
     Route: 055
     Dates: start: 20021115
  12. QVAR 40 [Concomitant]
     Indication: ASTHMA

REACTIONS (6)
  - ASTHMA [None]
  - ATONIC SEIZURES [None]
  - CONSTIPATION [None]
  - NEUROGENIC BLADDER [None]
  - PNEUMONIA [None]
  - URINARY TRACT INFECTION [None]
